FAERS Safety Report 7311496-X (Version None)
Quarter: 2011Q1

REPORT INFORMATION
  Report Type: 
  Country: None (occurrence: None)
  Receive Date: 20110216
  Receipt Date: 20110216
  Transmission Date: 20110831
  Serious: Yes (Hospitalization)
  Sender: FDA-Public Use
  Company Number: None

PATIENT
  Age: 24 Year
  Sex: Female
  Weight: 50.8029 kg

DRUGS (3)
  1. VICODIN [Suspect]
     Indication: KIDNEY INFECTION
     Dosage: 60  1 EVERY 4-6HRS  OTHER
     Route: 050
     Dates: start: 20110206, end: 20110214
  2. VICODIN [Suspect]
     Indication: NEPHRITIS
     Dosage: 60  1 EVERY 4-6HRS  OTHER
     Route: 050
     Dates: start: 20110206, end: 20110214
  3. VICODIN [Suspect]
     Indication: URINARY TRACT INFECTION
     Dosage: 60  1 EVERY 4-6HRS  OTHER
     Route: 050
     Dates: start: 20110206, end: 20110214

REACTIONS (18)
  - ABDOMINAL PAIN [None]
  - DIZZINESS [None]
  - HEAD INJURY [None]
  - KIDNEY INFECTION [None]
  - MALAISE [None]
  - VOMITING [None]
  - PALPITATIONS [None]
  - DIARRHOEA [None]
  - LOSS OF CONSCIOUSNESS [None]
  - CEREBRAL HAEMORRHAGE [None]
  - PAIN [None]
  - BLOOD PRESSURE DECREASED [None]
  - WEIGHT DECREASED [None]
  - NAUSEA [None]
  - HEADACHE [None]
  - DEHYDRATION [None]
  - CONVULSION [None]
  - INSOMNIA [None]
